FAERS Safety Report 16273564 (Version 1)
Quarter: 2019Q2

REPORT INFORMATION
  Report Type: Spontaneous
  Country: US (occurrence: US)
  Receive Date: 20190503
  Receipt Date: 20190503
  Transmission Date: 20190711
  Serious: No
  Sender: FDA-Public Use
  Company Number: US-RADIUS HEALTH INC.-2019US001072

PATIENT
  Sex: Female

DRUGS (1)
  1. TYMLOS [Suspect]
     Active Substance: ABALOPARATIDE
     Indication: OSTEOPOROSIS POSTMENOPAUSAL
     Dosage: 80 MCG, DAILY
     Route: 058

REACTIONS (6)
  - Epistaxis [Not Recovered/Not Resolved]
  - Product dose omission [Unknown]
  - Visual impairment [Not Recovered/Not Resolved]
  - Wrong technique in product usage process [Recovered/Resolved]
  - Alopecia [Not Recovered/Not Resolved]
  - Underdose [Unknown]
